FAERS Safety Report 12827669 (Version 1)
Quarter: 2016Q4

REPORT INFORMATION
  Report Type: Spontaneous
  Country: None (occurrence: FR)
  Receive Date: 20161007
  Receipt Date: 20161007
  Transmission Date: 20170207
  Serious: Yes (Death, Hospitalization)
  Sender: FDA-Public Use
  Company Number: FR-MEDAC PHARMA, INC.-1058100

PATIENT
  Age: 55 Year

DRUGS (11)
  1. BISOPROLOL FUMARATE. [Suspect]
     Active Substance: BISOPROLOL FUMARATE
     Route: 048
  2. POTASSIUM CHLORIDE. [Concomitant]
     Active Substance: POTASSIUM CHLORIDE
  3. FOLIC ACID. [Concomitant]
     Active Substance: FOLIC ACID
  4. ACETAMINOPHEN. [Concomitant]
     Active Substance: ACETAMINOPHEN
  5. RAMIPRIL. [Concomitant]
     Active Substance: RAMIPRIL
  6. DUORESP [Interacting]
     Active Substance: BUDESONIDE\FORMOTEROL
  7. ORENCIA [Concomitant]
     Active Substance: ABATACEPT
  8. CACIT D3 [Concomitant]
     Active Substance: CALCIUM\CHOLECALCIFEROL
  9. METOJECT [Suspect]
     Active Substance: METHOTREXATE SODIUM
     Indication: RHEUMATOID ARTHRITIS
     Route: 058
     Dates: start: 201307, end: 20160909
  10. FUROSEMIDE. [Suspect]
     Active Substance: FUROSEMIDE
     Route: 048
  11. ASPIRIN. [Concomitant]
     Active Substance: ASPIRIN

REACTIONS (11)
  - Mouth ulceration [Fatal]
  - Anal ulcer [Fatal]
  - Asthenia [Not Recovered/Not Resolved]
  - Melaena [Not Recovered/Not Resolved]
  - Pancytopenia [Fatal]
  - Telangiectasia [Not Recovered/Not Resolved]
  - Dehydration [None]
  - Ulcer haemorrhage [None]
  - Multiple organ dysfunction syndrome [None]
  - Oliguria [Unknown]
  - Cachexia [None]

NARRATIVE: CASE EVENT DATE: 20160914
